FAERS Safety Report 7618431-5 (Version None)
Quarter: 2011Q3

REPORT INFORMATION
  Report Type: 
  Country: None (occurrence: None)
  Receive Date: 20110718
  Receipt Date: 20110715
  Transmission Date: 20111222
  Serious: Yes (Other)
  Sender: FDA-Public Use
  Company Number: US-PFIZER INC-2011161029

PATIENT
  Sex: Male
  Weight: 81.633 kg

DRUGS (8)
  1. ABILIFY [Concomitant]
     Indication: DEPRESSION
     Dosage: 10 MG, DAILY
     Route: 048
  2. SYNTHROID [Concomitant]
     Indication: THYROID DISORDER
     Dosage: 0.5 MG, DAILY
     Route: 048
  3. NARDIL [Suspect]
     Dosage: 60 MG, UNK
  4. NEURONTIN [Concomitant]
     Indication: PAIN
     Dosage: 800 MG, UNK
     Route: 048
  5. NARDIL [Suspect]
     Indication: DEPRESSION
     Dosage: 90 MG, 2X/DAY
     Dates: start: 20110101
  6. AMLODIPINE/VALSARTAN [Suspect]
     Indication: BLOOD PRESSURE ABNORMAL
     Dosage: 50 MG, DAILY
     Route: 048
  7. PERCOCET [Concomitant]
     Indication: PAIN
     Dosage: 40 MG, UNK
     Route: 048
  8. KLONOPIN [Concomitant]
     Indication: ANXIETY
     Dosage: UNK
     Route: 048

REACTIONS (2)
  - VASCULITIS [None]
  - OEDEMA PERIPHERAL [None]
